FAERS Safety Report 11308667 (Version 1)
Quarter: 2015Q3

REPORT INFORMATION
  Report Type: Report from Study
  Country: US (occurrence: US)
  Receive Date: 20150724
  Receipt Date: 20150724
  Transmission Date: 20151125
  Serious: Yes (Hospitalization)
  Sender: FDA-Public Use
  Company Number: US-ROCHE-ITM201503IM012867

PATIENT
  Sex: Female

DRUGS (1)
  1. ESBRIET [Suspect]
     Active Substance: PIRFENIDONE
     Indication: IDIOPATHIC PULMONARY FIBROSIS
     Dosage: 3 CAPS PO TID, TOTAL- 2403 MG DAILY
     Route: 048
     Dates: start: 20150127

REACTIONS (8)
  - Cough [Unknown]
  - Fatigue [Unknown]
  - Lung disorder [Unknown]
  - Agitation [Unknown]
  - Decreased appetite [Unknown]
  - Pulmonary oedema [Unknown]
  - Dyspnoea [Unknown]
  - Oxygen saturation decreased [Unknown]
